FAERS Safety Report 20038673 (Version 2)
Quarter: 2021Q4

REPORT INFORMATION
  Report Type: Spontaneous
  Country: CN (occurrence: CN)
  Receive Date: 20211105
  Receipt Date: 20211118
  Transmission Date: 20220303
  Serious: Yes (Other)
  Sender: FDA-Public Use
  Company Number: CN-009507513-2111CHN000077

PATIENT
  Age: 87 Year
  Sex: Female

DRUGS (4)
  1. INVANZ [Suspect]
     Active Substance: ERTAPENEM SODIUM
     Indication: Infection
     Dosage: 1 GRAM, QD
     Route: 041
     Dates: start: 20210816, end: 20210826
  2. VANCOMYCIN [Suspect]
     Active Substance: VANCOMYCIN
     Indication: Infection
     Dosage: 1 GRAM, BID
     Route: 041
     Dates: start: 20210821, end: 20210826
  3. SODIUM CHLORIDE [Concomitant]
     Active Substance: SODIUM CHLORIDE
     Indication: Medication dilution
     Dosage: 100 ML, QD
     Route: 041
     Dates: start: 20210816, end: 20210826
  4. SODIUM CHLORIDE [Concomitant]
     Active Substance: SODIUM CHLORIDE
     Dosage: 100 ML, QD
     Route: 041
     Dates: start: 20210821, end: 20210826

REACTIONS (6)
  - Metabolic encephalopathy [Recovering/Resolving]
  - Central nervous system stimulation [Recovering/Resolving]
  - Logorrhoea [Recovering/Resolving]
  - Inappropriate affect [Recovering/Resolving]
  - Mental fatigue [Unknown]
  - Hypersomnia [Unknown]

NARRATIVE: CASE EVENT DATE: 20210826
